FAERS Safety Report 19925103 (Version 4)
Quarter: 2024Q1

REPORT INFORMATION
  Report Type: Spontaneous
  Country: CA (occurrence: CA)
  Receive Date: 20211006
  Receipt Date: 20240228
  Transmission Date: 20240410
  Serious: Yes (Other)
  Sender: FDA-Public Use
  Company Number: CA-SCALL-2021-CA-001471

PATIENT
  Age: 60 Year
  Sex: Female
  Weight: 61 kg

DRUGS (16)
  1. RABEPRAZOLE SODIUM [Suspect]
     Active Substance: RABEPRAZOLE SODIUM
     Indication: Product used for unknown indication
     Dosage: 40.0 MILLIGRAM(S) (20 MILLIGRAM(S), 1 IN 12 HOUR)
     Route: 048
  2. MOXIFLOXACIN HYDROCHLORIDE [Suspect]
     Active Substance: MOXIFLOXACIN HYDROCHLORIDE\MOXIFLOXACIN HYDROCHLORIDE MONOHYDRATE
     Dosage: 400.0 MILLIGRAM(S) (400 MILLIGRAM(S), 1 IN 1 DAY)
     Route: 065
  3. PREDNISONE [Suspect]
     Active Substance: PREDNISONE
     Dosage: 1) 25.0 MILLIGRAM(S) (25 MILLIGRAM(S), 1 IN 1 DAY); 2) 50.0 MILLIGRAM(S) (50 MILLIGRAM(S), 1 IN 1 DA
     Route: 065
  4. UMECLIDINIUM BROMIDE\VILANTEROL TRIFENATATE [Suspect]
     Active Substance: UMECLIDINIUM BROMIDE\VILANTEROL TRIFENATATE
     Dosage: 2 DOSAGE FORMS (FREQUENCY UNKNOWN)
     Route: 065
  5. VITAMIN D [Suspect]
     Active Substance: VITAMIN D NOS
     Dosage: DOSE UNKNOWN
     Route: 065
  6. WELLBUTRIN [Suspect]
     Active Substance: BUPROPION HYDROCHLORIDE
     Dosage: 1)150 MG,1 D/150 MG,12 HR; 2 + 3)300.0 MILLIGRAM(S) (150 MILLIGRAM(S), 1 IN 12 HOUR)
     Route: 065
  7. ALBUTEROL SULFATE [Suspect]
     Active Substance: ALBUTEROL SULFATE
     Dosage: DOSE AND FREQUENCY UNKNOWN
     Route: 065
  8. ERGOCALCIFEROL [Suspect]
     Active Substance: ERGOCALCIFEROL
     Dosage: 1.0 DOSAGE FORM (1 DOSAGE FORM, 1 IN 1 DAY)
  9. ALVESCO [Suspect]
     Active Substance: CICLESONIDE
     Dosage: 2.0 DOSAGE FORM (2 DOSAGE FORM, 1 IN 1 DAY)
     Route: 065
  10. NICOTINE [Suspect]
     Active Substance: NICOTINE
     Dosage: DOSE AND FREQUENCY UNKNOWN
     Route: 065
  11. ATIVAN [Suspect]
     Active Substance: LORAZEPAM
     Dosage: 1.0 MILLIGRAM(S) (1 MILLIGRAM(S), 1 IN 1 DAY)
     Route: 065
  12. BREO ELLIPTA [Suspect]
     Active Substance: FLUTICASONE FUROATE\VILANTEROL TRIFENATATE
     Dosage: DOSE AND FREQUENCY UNKNOWN
     Route: 065
  13. CALCIUM CARBONATE [Suspect]
     Active Substance: CALCIUM CARBONATE
     Dosage: 1.0 DOSAGE FORM (1 DOSAGE FORM, 1 IN 1 DAY)
  14. CEFUROXIME AXETIL [Suspect]
     Active Substance: CEFUROXIME AXETIL
     Dosage: 1000 MILLIGRAM(S) (500 MILLIGRAM(S), 1 IN 12 HOUR)
     Route: 065
  15. CITALOPRAM HYDROBROMIDE [Suspect]
     Active Substance: CITALOPRAM HYDROBROMIDE
     Dosage: 10.0 MILLIGRAM(S) (10 MILLIGRAM(S), 1 IN 1 DAY)
     Route: 065
  16. HUMAN IMMUNOGLOBULIN G [Suspect]
     Active Substance: HUMAN IMMUNOGLOBULIN G
     Dosage: DOSE AND FREQUENCY UNKNOWN
     Route: 058

REACTIONS (16)
  - Abdominal distension [Unknown]
  - Sputum purulent [Unknown]
  - Abdominal pain [Unknown]
  - Constipation [Unknown]
  - Hypersensitivity [Unknown]
  - Myalgia [Unknown]
  - Therapeutic product effect incomplete [Unknown]
  - Drug intolerance [Unknown]
  - Asthma [Unknown]
  - Full blood count abnormal [Unknown]
  - Cough [Unknown]
  - Fatigue [Unknown]
  - Nicotine dependence [Unknown]
  - Obstructive airways disorder [Unknown]
  - Secondary immunodeficiency [Unknown]
  - Wheezing [Unknown]
